FAERS Safety Report 17427101 (Version 1)
Quarter: 2020Q1

REPORT INFORMATION
  Report Type: Report from Study
  Country: JP (occurrence: JP)
  Receive Date: 20200217
  Receipt Date: 20200217
  Transmission Date: 20200409
  Serious: Yes (Death, Hospitalization, Other)
  Sender: FDA-Public Use
  Company Number: JP-009507513-2001JPN002409J

PATIENT
  Age: 74 Year
  Sex: Male
  Weight: 83 kg

DRUGS (5)
  1. TAZOPIPE [Concomitant]
     Active Substance: PIPERACILLIN SODIUM\TAZOBACTAM SODIUM
     Dosage: 2.25 GRAM, TID
     Route: 042
     Dates: start: 20190519, end: 20190531
  2. ALBUMIN [Concomitant]
     Active Substance: ALBUMIN HUMAN
     Dosage: 250 MILLILITER, QD
     Route: 042
     Dates: start: 20190520, end: 20190521
  3. PEMBROLIZUMAB. [Suspect]
     Active Substance: PEMBROLIZUMAB
     Indication: PROSTATE CANCER
     Dosage: 200 MILLIGRAM
     Route: 048
     Dates: start: 20190516, end: 20190724
  4. OXYCODONE [Concomitant]
     Active Substance: OXYCODONE
     Dosage: 10 MILLIGRAM, BID
     Route: 048
  5. DECADRON [Concomitant]
     Active Substance: DEXAMETHASONE
     Dosage: 1 MILLIGRAM, QD
     Route: 048

REACTIONS (3)
  - Malignant neoplasm progression [Fatal]
  - Renal impairment [Recovered/Resolved]
  - Off label use [Unknown]

NARRATIVE: CASE EVENT DATE: 20190520
